FAERS Safety Report 22247594 (Version 1)
Quarter: 2023Q2

REPORT INFORMATION
  Report Type: Spontaneous
  Country: US (occurrence: US)
  Receive Date: 20230425
  Receipt Date: 20230425
  Transmission Date: 20230721
  Serious: No
  Sender: FDA-Public Use
  Company Number: US-TOPROL-2022000174

PATIENT
  Sex: Female
  Weight: 63.5 kg

DRUGS (1)
  1. METOPROLOL SUCCINATE [Suspect]
     Active Substance: METOPROLOL SUCCINATE
     Indication: Product used for unknown indication
     Dosage: ONE IN THE MORNING AND A HALF A PILL AT NIGHT
     Route: 065

REACTIONS (3)
  - Alopecia [Not Recovered/Not Resolved]
  - Hair texture abnormal [Not Recovered/Not Resolved]
  - Inappropriate schedule of product administration [Unknown]
